FAERS Safety Report 11886932 (Version 1)
Quarter: 2016Q1

REPORT INFORMATION
  Report Type: Spontaneous
  Country: JP (occurrence: JP)
  Receive Date: 20160104
  Receipt Date: 20160104
  Transmission Date: 20160526
  Serious: Yes (Life-Threatening)
  Sender: FDA-Public Use
  Company Number: JP-MUNDIPHARMA DS AND PHARMACOVIGILANCE-GBR-2015-0033123

PATIENT
  Age: 43 Year
  Sex: Male

DRUGS (10)
  1. MORPHINE SULFATE CR TABLET [Suspect]
     Active Substance: MORPHINE SULFATE
     Indication: LUNG NEOPLASM MALIGNANT
     Dosage: 10 MG, BID
     Route: 048
     Dates: start: 20150916, end: 20151215
  2. ALOXI [Concomitant]
     Active Substance: PALONOSETRON HYDROCHLORIDE
     Indication: LUNG NEOPLASM MALIGNANT
     Dosage: 0.75 MG, DAILY
     Route: 041
     Dates: start: 20151209, end: 20151209
  3. DECADRON                           /00016002/ [Concomitant]
     Active Substance: DEXAMETHASONE
     Indication: LUNG NEOPLASM MALIGNANT
     Dosage: 6.6 MG, DAILY
     Route: 041
     Dates: start: 20151209, end: 20151209
  4. BAKTAR [Concomitant]
     Active Substance: SULFAMETHOXAZOLE\TRIMETHOPRIM
     Indication: LUNG NEOPLASM MALIGNANT
     Dosage: 1 DF, DAILY
     Route: 048
     Dates: start: 20151119
  5. GLUCOSE [Concomitant]
     Active Substance: DEXTROSE
     Dosage: UNK
     Dates: start: 20151209
  6. AQUPLA [Suspect]
     Active Substance: NEDAPLATIN
     Indication: LUNG NEOPLASM MALIGNANT
     Dosage: 200 MG, DAILY
     Route: 041
     Dates: start: 20151209, end: 20151209
  7. NEXIUM [Concomitant]
     Active Substance: ESOMEPRAZOLE MAGNESIUM
     Indication: LUNG NEOPLASM MALIGNANT
     Dosage: 20 MG, DAILY
     Route: 048
     Dates: start: 20150726
  8. SALINE                             /00075401/ [Concomitant]
     Active Substance: SODIUM CHLORIDE
     Dosage: UNK
     Dates: start: 20151209
  9. DOCETAXEL. [Concomitant]
     Active Substance: DOCETAXEL
     Indication: LUNG NEOPLASM MALIGNANT
     Dosage: 120 MG, DAILY
     Route: 041
     Dates: start: 20151209, end: 20151209
  10. BROCIN-CODEINE [Concomitant]
     Indication: LUNG NEOPLASM MALIGNANT
     Dosage: 6 ML, DAILY
     Route: 048
     Dates: start: 20150521

REACTIONS (1)
  - Anaphylactic shock [Recovered/Resolved]

NARRATIVE: CASE EVENT DATE: 20151209
